FAERS Safety Report 7659741-5 (Version None)
Quarter: 2011Q3

REPORT INFORMATION
  Report Type: 
  Country: None (occurrence: None)
  Receive Date: 20110805
  Receipt Date: 20110729
  Transmission Date: 20111222
  Serious: Yes (Other)
  Sender: FDA-Public Use
  Company Number: PHHY2011ES68478

PATIENT
  Age: 52 Year
  Sex: Female

DRUGS (3)
  1. CYCLOPHOSPHAMIDE [Suspect]
     Indication: BONE MARROW TRANSPLANT
  2. THIOTEPA [Suspect]
     Indication: BONE MARROW TRANSPLANT
  3. CARBOPLATIN [Suspect]
     Indication: BONE MARROW TRANSPLANT

REACTIONS (6)
  - METAPLASIA [None]
  - DERMATITIS [None]
  - OEDEMA [None]
  - ERYTHEMA [None]
  - SKIN EROSION [None]
  - BLISTER [None]
